FAERS Safety Report 6433954-2 (Version None)
Quarter: 2009Q4

REPORT INFORMATION
  Report Type: 
  Country: None (occurrence: None)
  Receive Date: 20091110
  Receipt Date: 20091105
  Transmission Date: 20100525
  Serious: Yes (Hospitalization)
  Sender: FDA-Public Use
  Company Number: IT-BRISTOL-MYERS SQUIBB COMPANY-14784904

PATIENT
  Age: 70 Year
  Sex: Male

DRUGS (6)
  1. COUMADIN [Suspect]
     Indication: PROPHYLAXIS
     Dosage: INTERRUPTED ON 30AUG09
     Route: 048
     Dates: start: 20020101
  2. IPERTEN [Concomitant]
     Indication: HYPERTENSION
     Route: 048
     Dates: start: 20060101, end: 20090830
  3. AMIODARONE HCL [Concomitant]
     Indication: ARRHYTHMIA
     Route: 048
     Dates: start: 20060101, end: 20090830
  4. TRIATEC [Concomitant]
     Indication: HYPERTENSION
  5. TOLEP [Concomitant]
     Indication: PROPHYLAXIS
     Route: 048
     Dates: start: 20060101, end: 20090830
  6. PEPTAZOL [Concomitant]
     Indication: PROPHYLAXIS
     Route: 048
     Dates: start: 20060101, end: 20090830

REACTIONS (4)
  - CEREBRAL HAEMORRHAGE [None]
  - COMA [None]
  - CONVULSION [None]
  - INTERNATIONAL NORMALISED RATIO INCREASED [None]
